FAERS Safety Report 15748232 (Version 2)
Quarter: 2019Q1

REPORT INFORMATION
  Report Type: Report from Study
  Country: US (occurrence: US)
  Receive Date: 20181221
  Receipt Date: 20190125
  Transmission Date: 20190417
  Serious: Yes (Other)
  Sender: FDA-Public Use
  Company Number: US-009507513-1812USA007014

PATIENT
  Age: 15 Year
  Sex: Female
  Weight: 58.5 kg

DRUGS (3)
  1. BETADINE [Suspect]
     Active Substance: POVIDONE-IODINE
     Dosage: UNK
     Dates: start: 20181211
  2. ANALGESIC (UNSPECIFIED) [Suspect]
     Active Substance: UNSPECIFIED INGREDIENT
     Dosage: UNK
     Dates: start: 20181211
  3. IMPLANON [Suspect]
     Active Substance: ETONOGESTREL
     Dosage: 1 ROD, UNKNOWN
     Route: 059
     Dates: start: 20181211, end: 20181211

REACTIONS (3)
  - Loss of consciousness [Unknown]
  - Device difficult to use [Unknown]
  - Complication of device insertion [Unknown]

NARRATIVE: CASE EVENT DATE: 20181211
